FAERS Safety Report 19672124 (Version 2)
Quarter: 2021Q3

REPORT INFORMATION
  Report Type: Report from Study
  Country: None (occurrence: US)
  Receive Date: 20210806
  Receipt Date: 20210925
  Transmission Date: 20211014
  Serious: Yes (Other)
  Sender: FDA-Public Use
  Company Number: US-ABBVIE-21K-163-4019988-00

PATIENT
  Sex: Male

DRUGS (4)
  1. HUMIRA [Suspect]
     Active Substance: ADALIMUMAB
     Dosage: DAY 15
     Route: 058
     Dates: start: 2021, end: 2021
  2. HUMIRA [Suspect]
     Active Substance: ADALIMUMAB
     Dosage: DAY 29
     Route: 058
     Dates: start: 2021, end: 2021
  3. HUMIRA [Suspect]
     Active Substance: ADALIMUMAB
     Indication: COLITIS ULCERATIVE
     Dosage: DAY 1
     Route: 058
     Dates: start: 202106, end: 202106
  4. HUMIRA [Suspect]
     Active Substance: ADALIMUMAB
     Indication: COLITIS ULCERATIVE
     Route: 058
     Dates: start: 2021

REACTIONS (6)
  - Transfusion [Unknown]
  - Fatigue [Not Recovered/Not Resolved]
  - Rectal haemorrhage [Unknown]
  - Abdominal pain [Recovering/Resolving]
  - Muscle spasms [Recovering/Resolving]
  - Rash [Unknown]

NARRATIVE: CASE EVENT DATE: 2021
